FAERS Safety Report 9888326 (Version 1)
Quarter: 2014Q1

REPORT INFORMATION
  Report Type: Spontaneous
  Country: US (occurrence: US)
  Receive Date: 20140211
  Receipt Date: 20140211
  Transmission Date: 20141002
  Serious: No
  Sender: FDA-Public Use
  Company Number: US-PFIZER INC-2014036857

PATIENT
  Age: 65 Year
  Sex: Female
  Weight: 56.24 kg

DRUGS (5)
  1. LYRICA [Suspect]
     Indication: NEURALGIA
     Dosage: 50 MG, 1X/DAY
     Dates: start: 20140204
  2. LYRICA [Interacting]
     Indication: HERPES ZOSTER
  3. TIMOLOL MALEATE [Interacting]
     Indication: HEADACHE
     Dosage: 10 MG, 2X/DAY
  4. TOPAMAX [Interacting]
     Indication: MIGRAINE
     Dosage: 100 MG, DAILY
  5. AMITRIPTYLINE [Interacting]
     Indication: MIGRAINE
     Dosage: 50 MG, DAILY
     Dates: start: 201307

REACTIONS (3)
  - Drug interaction [Unknown]
  - Vertigo [Unknown]
  - Dizziness [Unknown]
